FAERS Safety Report 7753969 (Version 2)
Quarter: 2012Q4

REPORT INFORMATION
  Report Type: 
  Country: CA (occurrence: CA)
  Receive Date: 20110110
  Receipt Date: 20121109
  Transmission Date: 20130627
  Serious: Yes (Other)
  Sender: FDA-Public Use
  Company Number: PHHY2007CA03778

PATIENT
  Sex: Female

DRUGS (1)
  1. SANDOSTATIN LAR [Suspect]
     Indication: CARCINOID TUMOUR
     Dosage: 30 mg, Every 4 weeks
     Route: 030
     Dates: start: 20021020

REACTIONS (10)
  - Diarrhoea [Unknown]
  - Hypertension [Unknown]
  - Lip swelling [Unknown]
  - Chest discomfort [Unknown]
  - Fatigue [Unknown]
  - Abdominal discomfort [Unknown]
  - Oropharyngeal pain [Unknown]
  - Arthralgia [Unknown]
  - Blood glucose fluctuation [Unknown]
  - Injection site pain [Unknown]
